FAERS Safety Report 10224396 (Version 2)
Quarter: 2014Q2

REPORT INFORMATION
  Report Type: Spontaneous
  Country: US (occurrence: None)
  Receive Date: 20140605
  Receipt Date: 20140612
  Transmission Date: 20141212
  Serious: Yes (Hospitalization)
  Sender: FDA-Public Use
  Company Number: UNT-2014-001235

PATIENT
  Age: 67 Year
  Sex: Male
  Weight: 85.7 kg

DRUGS (3)
  1. REMODULIN [Suspect]
     Indication: COR PULMONALE CHRONIC
     Dosage: 0.015UG/KG/MIN.CONTINUOUS IV DRIP.
     Route: 041
     Dates: start: 20131019
  2. ADCIRCA (TADALAFIL) [Concomitant]
  3. WARFARIN (WARFARIN) [Concomitant]

REACTIONS (1)
  - Dyspnoea [None]
